FAERS Safety Report 5401066-2 (Version None)
Quarter: 2007Q3

REPORT INFORMATION
  Report Type: 
  Country: None (occurrence: None)
  Receive Date: 20070731
  Receipt Date: 20070723
  Transmission Date: 20080115
  Serious: Yes (Other)
  Sender: FDA-Public Use
  Company Number: TW-JNJFOC-20070704669

PATIENT
  Age: 40 Year
  Sex: Male

DRUGS (2)
  1. SPORANOX [Suspect]
     Indication: MENINGITIS CRYPTOCOCCAL
     Route: 065
  2. CISAPRIDE [Interacting]
     Indication: DYSPEPSIA
     Route: 065

REACTIONS (4)
  - DRUG INTERACTION [None]
  - ELECTROCARDIOGRAM QT PROLONGED [None]
  - SYNCOPE [None]
  - TORSADE DE POINTES [None]
